FAERS Safety Report 5136330-8 (Version None)
Quarter: 2006Q4

REPORT INFORMATION
  Report Type: 
  Country: None (occurrence: None)
  Receive Date: 20061027
  Receipt Date: 20061025
  Transmission Date: 20070319
  Serious: Yes (Other)
  Sender: FDA-Public Use
  Company Number: DE-GLAXOSMITHKLINE-D0051294A

PATIENT
  Sex: Female

DRUGS (1)
  1. ELMENDOS [Suspect]
     Route: 048

REACTIONS (1)
  - HYPOKALAEMIA [None]
